FAERS Safety Report 18326939 (Version 3)
Quarter: 2020Q4

REPORT INFORMATION
  Report Type: Report from Study
  Country: DE (occurrence: DE)
  Receive Date: 20200930
  Receipt Date: 20201130
  Transmission Date: 20210113
  Serious: Yes (Hospitalization)
  Sender: FDA-Public Use
  Company Number: DE-ROCHE-2677568

PATIENT
  Age: 48 Year
  Sex: Female
  Weight: 73 kg

DRUGS (6)
  1. BLINDED ATEZOLIZUMAB [Suspect]
     Active Substance: ATEZOLIZUMAB
     Indication: HER2 POSITIVE BREAST CANCER
     Dosage: DATE OF MOST RECENT DOSE OF BLINDED ATEZOLIZUMAB PRIOR TO AE/SAE ONSET 25/AUG/2020
     Route: 041
     Dates: start: 20200630
  2. DOXORUBICIN [Suspect]
     Active Substance: DOXORUBICIN
     Indication: HER2 POSITIVE BREAST CANCER
     Dosage: DOSE OF LAST DOXORUBICIN ADMINISTERED PRIOR TO SAE ONSET 107.4 MG?DATE OF MOST RECENT DOSE OF DOXORU
     Route: 042
     Dates: start: 20200630
  3. PERTUZUMAB. [Suspect]
     Active Substance: PERTUZUMAB
     Indication: HER2 POSITIVE BREAST CANCER
     Dosage: DOSE OF LAST PERTUZUMAB ADMINISTERED PRIOR TO AE ONSET 840 MG. THIS IS THE MOST RECENT DOSE.?LOADING
     Route: 042
     Dates: start: 20200825
  4. PACLITAXEL. [Suspect]
     Active Substance: PACLITAXEL
     Indication: HER2 POSITIVE BREAST CANCER
     Dosage: DOSE OF LAST PACLITAXEL ADMINISTERED PRIOR TO ADVERSE EVENT 144 MG. DATE OF MOST RECENT DOSE OF PACL
     Route: 042
     Dates: start: 20200825
  5. CYCLOPHOSPHAMIDE. [Suspect]
     Active Substance: CYCLOPHOSPHAMIDE
     Indication: HER2 POSITIVE BREAST CANCER
     Dosage: DOSE OF LAST CYCLOPHOSPHAMIDE  ADMINISTERED 1074 MG?DATE OF MOST RECENT DOSE OF CYCLOPHOSPHAMIDE PRI
     Route: 042
     Dates: start: 20200630
  6. TRASTUZUMAB. [Suspect]
     Active Substance: TRASTUZUMAB
     Indication: HER2 POSITIVE BREAST CANCER
     Dosage: DOSE OF LAST TRASTUZUMAB ADMINISTERED PRIOR TO AE ONSET 584 MG. ?LOADING DOSE (8 MG/KG)
     Route: 042
     Dates: start: 20200825

REACTIONS (1)
  - Pneumonitis [Recovering/Resolving]

NARRATIVE: CASE EVENT DATE: 20200914
